FAERS Safety Report 5532496-6 (Version None)
Quarter: 2007Q4

REPORT INFORMATION
  Report Type: 
  Country: None (occurrence: None)
  Receive Date: 20071203
  Receipt Date: 20071120
  Transmission Date: 20080405
  Serious: Yes (Other)
  Sender: FDA-Public Use
  Company Number: JP-GILEAD-2007-0013783

PATIENT
  Sex: Male
  Weight: 55 kg

DRUGS (4)
  1. HEPSERA [Suspect]
     Indication: HEPATITIS B
     Route: 048
     Dates: start: 20041208, end: 20070829
  2. ZEFIX [Concomitant]
     Route: 048
     Dates: start: 20031114, end: 20070829
  3. URSODIOL [Concomitant]
     Dates: start: 20021211
  4. SELBEX [Concomitant]
     Indication: GASTRITIS
     Route: 048
     Dates: start: 20031115

REACTIONS (5)
  - ALANINE AMINOTRANSFERASE INCREASED [None]
  - DRUG RESISTANCE [None]
  - GAMMA-GLUTAMYLTRANSFERASE INCREASED [None]
  - HBV DNA INCREASED [None]
  - HEPATITIS B [None]
